FAERS Safety Report 10466429 (Version 2)
Quarter: 2015Q1

REPORT INFORMATION
  Report Type: Spontaneous
  Country: DE (occurrence: DE)
  Receive Date: 20140922
  Receipt Date: 20150306
  Transmission Date: 20150720
  Serious: Yes (Death, Other)
  Sender: FDA-Public Use
  Company Number: DE-009507513-1409DEU006464

PATIENT
  Age: 75 Year
  Sex: Male

DRUGS (9)
  1. AMLODIPINE [Concomitant]
     Active Substance: AMLODIPINE BESYLATE
     Indication: HYPERTENSION
     Dosage: 5 MG, TWICE A DAY
     Route: 048
     Dates: end: 20140730
  2. DIGITOXIN [Interacting]
     Active Substance: DIGITOXIN
     Indication: ATRIAL FIBRILLATION
     Dosage: 0.07 MG, ONCE A DAY
     Route: 048
     Dates: end: 20140730
  3. BISOPROLOL [Concomitant]
     Active Substance: BISOPROLOL
     Indication: HYPERTENSION
     Dosage: 10 MG, ONCE A DAY
     Route: 048
     Dates: end: 20140730
  4. XARELTO [Interacting]
     Active Substance: RIVAROXABAN
     Indication: ATRIAL FIBRILLATION
     Dosage: 15 MG, ONCE A DAY
     Route: 048
     Dates: end: 20140730
  5. BISOPROLOL [Concomitant]
     Active Substance: BISOPROLOL
     Indication: ATRIAL FIBRILLATION
  6. FUROSEMIDE. [Concomitant]
     Active Substance: FUROSEMIDE
     Dosage: 40 MG, ONCE A DAY
     Route: 048
     Dates: end: 20140730
  7. TORSEMIDE. [Concomitant]
     Active Substance: TORSEMIDE
     Indication: DIABETIC NEPHROPATHY
     Dosage: 10 MG, ONCE A DAY
     Route: 048
     Dates: end: 20140730
  8. SIMVASTATIN. [Suspect]
     Active Substance: SIMVASTATIN
     Indication: HYPERLIPIDAEMIA
     Dosage: 40 MG, ONCE A DAY
     Route: 048
     Dates: end: 20140729
  9. LIPROLOG [Concomitant]
     Active Substance: INSULIN LISPRO
     Indication: TYPE 2 DIABETES MELLITUS
     Dosage: 75 IU, UNK
     Route: 058
     Dates: end: 20140730

REACTIONS (2)
  - Drug interaction [Fatal]
  - Intraventricular haemorrhage [Fatal]

NARRATIVE: CASE EVENT DATE: 20140730
